FAERS Safety Report 25115902 (Version 1)
Quarter: 2025Q1

REPORT INFORMATION
  Report Type: Spontaneous
  Country: CA (occurrence: CA)
  Receive Date: 20250325
  Receipt Date: 20250325
  Transmission Date: 20250408
  Serious: Yes (Other)
  Sender: SANOFI AVENTIS
  Company Number: CA-SA-2025SA084308

PATIENT
  Sex: Female

DRUGS (2)
  1. DUPIXENT [Suspect]
     Active Substance: DUPILUMAB
     Route: 065
     Dates: start: 2024
  2. DUPIXENT [Suspect]
     Active Substance: DUPILUMAB
     Route: 065

REACTIONS (2)
  - Eosinophilic granulomatosis with polyangiitis [Not Recovered/Not Resolved]
  - Arthralgia [Not Recovered/Not Resolved]
